FAERS Safety Report 13321505 (Version 1)
Quarter: 2017Q1

REPORT INFORMATION
  Report Type: Spontaneous
  Country: MX (occurrence: MX)
  Receive Date: 20170310
  Receipt Date: 20170310
  Transmission Date: 20170428
  Serious: Yes (Life-Threatening, Other)
  Sender: FDA-Public Use
  Company Number: MX-BAYER-2017-044789

PATIENT
  Age: 23 Year
  Sex: Female

DRUGS (1)
  1. YASMIN [Suspect]
     Active Substance: DROSPIRENONE\ETHINYL ESTRADIOL
     Indication: CONTRACEPTION
     Dosage: UNK
     Route: 048
     Dates: start: 20110301, end: 20120301

REACTIONS (3)
  - Coma [Recovered/Resolved]
  - Memory impairment [Recovered/Resolved]
  - Arteriosclerosis [Recovered/Resolved]

NARRATIVE: CASE EVENT DATE: 20120301
